FAERS Safety Report 8798227 (Version 1)
Quarter: 2012Q4

REPORT INFORMATION
  Report Type: Report from Study
  Country: US (occurrence: US)
  Receive Date: 20120920
  Receipt Date: 20120920
  Transmission Date: 20130627
  Serious: Yes (Other)
  Sender: FDA-Public Use
  Company Number: US-US-EMD SERONO, INC.-7161197

PATIENT
  Sex: Male

DRUGS (8)
  1. SAIZEN [(SOMATROPIN (RDNA ORIGIN) FOR INJECTION)] [Suspect]
     Indication: RENAL FAILURE CHRONIC
     Route: 058
  2. AMLODIPINE [Concomitant]
     Indication: PRODUCT USED FOR UNKNOWN INDICATION
  3. CALCITRIOL [Concomitant]
     Indication: PRODUCT USED FOR UNKNOWN INDICATION
  4. FLORINEF [Concomitant]
     Indication: PRODUCT USED FOR UNKNOWN INDICATION
  5. LACTOBACILLUS ACIDOPHILUS BULGARICUS [Concomitant]
     Indication: PRODUCT USED FOR UNKNOWN INDICATION
  6. ERYTHROPOETIN [Concomitant]
     Indication: PRODUCT USED FOR UNKNOWN INDICATION
  7. TACROLIMUS [Concomitant]
     Indication: PRODUCT USED FOR UNKNOWN INDICATION
  8. MULTIVITAMINS [Concomitant]
     Indication: PRODUCT USED FOR UNKNOWN INDICATION

REACTIONS (1)
  - Transplant rejection [Not Recovered/Not Resolved]
